FAERS Safety Report 7469819-7 (Version None)
Quarter: 2011Q2

REPORT INFORMATION
  Report Type: 
  Country: None (occurrence: None)
  Receive Date: 20110510
  Receipt Date: 20100226
  Transmission Date: 20111010
  Serious: Yes (Hospitalization)
  Sender: FDA-Public Use
  Company Number: GB-ROCHE-688060

PATIENT
  Age: 46 Year
  Sex: Female

DRUGS (8)
  1. TEGRETOL [Concomitant]
  2. PREDNISOLONE [Concomitant]
  3. CALCICHEW D3 [Concomitant]
  4. CITALOPRAM HYDROBROMIDE [Concomitant]
  5. OMEPRAZOLE [Concomitant]
  6. MYCOPHENOLATE MOFETIL [Suspect]
     Indication: VASCULITIS
     Route: 048
     Dates: start: 20100201, end: 20100211
  7. IBUPROFEN [Concomitant]
  8. ALENDRONIC ACID [Concomitant]

REACTIONS (3)
  - DYSPHONIA [None]
  - RASH GENERALISED [None]
  - ALOPECIA [None]
